FAERS Safety Report 6269187-2 (Version None)
Quarter: 2009Q3

REPORT INFORMATION
  Report Type: 
  Country: None (occurrence: None)
  Receive Date: 20090715
  Receipt Date: 20090714
  Transmission Date: 20100115
  Serious: Yes (Life-Threatening)
  Sender: FDA-Public Use
  Company Number: GB-JNJFOC-20090704180

PATIENT
  Age: 62 Year
  Weight: 70.7 kg

DRUGS (3)
  1. TOPIRAMATE [Suspect]
     Indication: CLUSTER HEADACHE
     Route: 048
  2. IRBESARTAN [Concomitant]
     Indication: HYPERTENSION
     Route: 048
  3. VALPROATE SODIUM [Concomitant]
     Indication: BIPOLAR DISORDER
     Route: 048

REACTIONS (1)
  - MANIA [None]
